FAERS Safety Report 24448925 (Version 1)
Quarter: 2024Q4

REPORT INFORMATION
  Report Type: Spontaneous
  Country: US (occurrence: US)
  Receive Date: 20241017
  Receipt Date: 20241017
  Transmission Date: 20250114
  Serious: Yes (Hospitalization, Other)
  Sender: MERCK
  Company Number: US-009507513-2410USA002874

PATIENT
  Sex: Male
  Weight: 65.76 kg

DRUGS (3)
  1. KEYTRUDA [Suspect]
     Active Substance: PEMBROLIZUMAB
     Indication: Squamous cell carcinoma
     Dosage: 400 MILLIGRAM, ONCE
     Route: 042
     Dates: start: 20240722, end: 20240722
  2. OLAPARIB [Suspect]
     Active Substance: OLAPARIB
     Indication: Squamous cell carcinoma
     Dosage: 150 MILLIGRAM, BID
     Route: 048
     Dates: start: 20240722, end: 20240812
  3. CARBOPLATIN\PACLITAXEL [Suspect]
     Active Substance: CARBOPLATIN\PACLITAXEL
     Indication: Squamous cell carcinoma
     Dosage: 100 MILLILITER, QW(STRENGTH: 130.8/81.6 MG)
     Route: 042
     Dates: start: 20240910, end: 20240923

REACTIONS (11)
  - Nausea [Recovered/Resolved]
  - Adrenal insufficiency [Unknown]
  - Hypophysitis [Unknown]
  - Vomiting [Unknown]
  - Lethargy [Unknown]
  - Pain [Recovered/Resolved]
  - Agitation [Recovering/Resolving]
  - Feeding intolerance [Recovered/Resolved]
  - Hyponatraemia [Unknown]
  - Constipation [Unknown]
  - Product use in unapproved indication [Unknown]

NARRATIVE: CASE EVENT DATE: 20240101
